FAERS Safety Report 9860600 (Version 2)
Quarter: 2014Q1

REPORT INFORMATION
  Report Type: Report from Study
  Country: JP (occurrence: JP)
  Receive Date: 20140202
  Receipt Date: 20140202
  Transmission Date: 20141002
  Serious: Yes (Hospitalization)
  Sender: FDA-Public Use
  Company Number: JP-ALLERGAN-1217811US

PATIENT
  Age: 60 Year
  Sex: Female

DRUGS (4)
  1. BOTULINUM TOXIN TYPE A - GENERAL (9060X) [Suspect]
     Indication: STRABISMUS
     Dosage: 2.5 UNITS, SINGLE
     Route: 030
     Dates: start: 20120927, end: 20120927
  2. ADAPTINOL [Concomitant]
     Indication: RETINITIS PIGMENTOSA
     Dosage: 5 MG, TID
     Route: 048
     Dates: end: 20121014
  3. NEUROVITAN [Concomitant]
     Indication: RETINITIS PIGMENTOSA
     Dosage: 1 DF, TID
     Route: 048
     Dates: end: 20121014
  4. CARNACULIN [Concomitant]
     Indication: RETINITIS PIGMENTOSA
     Dosage: 1 DF, TID
     Route: 048
     Dates: end: 20121014

REACTIONS (1)
  - Strabismus [Recovered/Resolved]
